FAERS Safety Report 4963786-3 (Version None)
Quarter: 2006Q1

REPORT INFORMATION
  Report Type: 
  Country: None (occurrence: None)
  Receive Date: 20060330
  Receipt Date: 20060322
  Transmission Date: 20060701
  Serious: Yes (Hospitalization)
  Sender: FDA-Public Use
  Company Number: US016975

PATIENT
  Age: 51 Year
  Sex: Male

DRUGS (10)
  1. ARSENIC TRIOXIDE [Suspect]
     Indication: ACUTE PROMYELOCYTIC LEUKAEMIA
     Dosage: 10.725 MG QD INTRAVENOUS DRIP
     Route: 041
     Dates: start: 20051114, end: 20051224
  2. ARSENIC TRIOXIDE [Suspect]
     Indication: ACUTE PROMYELOCYTIC LEUKAEMIA
     Dosage: 10.725 MG QD INTRAVENOUS DRIP
     Route: 041
     Dates: start: 20060104, end: 20060113
  3. ARSENIC TRIOXIDE [Suspect]
     Indication: ACUTE PROMYELOCYTIC LEUKAEMIA
     Dosage: 10.725 MG QD INTRAVENOUS DRIP
     Route: 041
     Dates: start: 20060115, end: 20060123
  4. IDARUBICIN HCL [Concomitant]
  5. GABEXATE MESILATE [Concomitant]
  6. DANAPAROID SODIUM [Concomitant]
  7. FLOMOXEF SODIUM [Concomitant]
  8. ISEPAMICIN SULFATE [Concomitant]
  9. CEFTAZIDIME [Concomitant]
  10. PIPERACILLIN SODIUM [Concomitant]

REACTIONS (2)
  - DRUG DOSE OMISSION [None]
  - WHITE BLOOD CELL COUNT DECREASED [None]
